FAERS Safety Report 18508321 (Version 3)
Quarter: 2021Q1

REPORT INFORMATION
  Report Type: Report from Study
  Country: TW (occurrence: TW)
  Receive Date: 20201116
  Receipt Date: 20210105
  Transmission Date: 20210419
  Serious: Yes (Other)
  Sender: FDA-Public Use
  Company Number: TW-INCYTE CORPORATION-2020IN011168

PATIENT

DRUGS (1)
  1. JAKAVI [Suspect]
     Active Substance: RUXOLITINIB
     Indication: PRIMARY MYELOFIBROSIS
     Dosage: 20 MG, QD
     Route: 048
     Dates: start: 20191224

REACTIONS (6)
  - Cellulitis [Recovering/Resolving]
  - Polymenorrhagia [Not Recovered/Not Resolved]
  - Menorrhagia [Unknown]
  - Periodontitis [Unknown]
  - Inappropriate schedule of product administration [Unknown]
  - Menstruation irregular [Unknown]

NARRATIVE: CASE EVENT DATE: 20191224
